FAERS Safety Report 5061771-7 (Version None)
Quarter: 2006Q3

REPORT INFORMATION
  Report Type: 
  Country: None (occurrence: None)
  Receive Date: 20060726
  Receipt Date: 20060412
  Transmission Date: 20061208
  Serious: No
  Sender: FDA-Public Use
  Company Number: S2006US05980

PATIENT
  Sex: Female

DRUGS (1)
  1. TRIAMTERENE AND HYDROCHLOROTHIAZIDE [Suspect]
     Indication: DRUG USE FOR UNKNOWN INDICATION
     Route: 065

REACTIONS (3)
  - ANOREXIA [None]
  - FATIGUE [None]
  - MUSCLE SPASMS [None]
